FAERS Safety Report 25060618 (Version 2)
Quarter: 2025Q2

REPORT INFORMATION
  Report Type: Spontaneous
  Country: CA (occurrence: CA)
  Receive Date: 20250310
  Receipt Date: 20250520
  Transmission Date: 20250716
  Serious: Yes (Life-Threatening, Other)
  Sender: Kenvue
  Company Number: CA-KENVUE-20250300829

PATIENT

DRUGS (8)
  1. IBUPROFEN [Suspect]
     Active Substance: IBUPROFEN
     Indication: Abdominal pain upper
     Dosage: 400 MILLIGRAM, EVERY 4 HOUR, 6 EVERY 1 DAYS (4 TO 6 TIMES PER DAY FOR 4 DAYS)
     Route: 048
     Dates: start: 20240910, end: 20240913
  2. IBUPROFEN [Suspect]
     Active Substance: IBUPROFEN
     Indication: Abdominal pain upper
     Dosage: 400 MILLIGRAM, EVERY 4 HOUR, 6 EVERY 1 DAYS (4 TO 6 TIMES PER DAY FOR 4 DAYS)
     Route: 048
     Dates: start: 20240910, end: 20240913
  3. PAXIL [Suspect]
     Active Substance: PAROXETINE HYDROCHLORIDE
     Indication: Product used for unknown indication
     Dosage: 40 MILLIGRAM, ONCE A DAY, 1 EVERY 1 DAYS
     Route: 048
     Dates: start: 20180401
  4. AMITRIPTYLINE [Concomitant]
     Active Substance: AMITRIPTYLINE
     Indication: Product used for unknown indication
     Dosage: 50 MILLIGRAM, AT BEDTIME
     Route: 065
  5. DICYCLOMINE [Concomitant]
     Active Substance: DICYCLOMINE HYDROCHLORIDE
     Indication: Product used for unknown indication
     Dosage: 20 MILLIGRAM, THRICE A DAY
     Route: 065
     Dates: start: 20250908
  6. QUETIAPINE [Concomitant]
     Active Substance: QUETIAPINE
     Indication: Product used for unknown indication
     Dosage: 50 MILLIGRAM, AT BEDTIME
     Route: 065
  7. POLYETHYLENE GLYCOL 3350 [Concomitant]
     Active Substance: POLYETHYLENE GLYCOL 3350
     Indication: Product used for unknown indication
     Dosage: 17 GRAM, ONCE A DAY
     Route: 065
     Dates: start: 20250912
  8. PANTOPRAZOLE [Concomitant]
     Active Substance: PANTOPRAZOLE
     Indication: Product used for unknown indication
     Dosage: 40 MILLIGRAM, ONCE A DAY
     Route: 065
     Dates: start: 202406, end: 202406

REACTIONS (6)
  - Abdominal abscess [Recovered/Resolved]
  - Asthenia [Recovering/Resolving]
  - Duodenal perforation [Recovered/Resolved]
  - Duodenal ulcer [Recovered/Resolved]
  - Peritonitis [Recovered/Resolved]
  - Upper gastrointestinal haemorrhage [Recovered/Resolved]
